FAERS Safety Report 5914792-3 (Version None)
Quarter: 2008Q4

REPORT INFORMATION
  Report Type: 
  Country: None (occurrence: None)
  Receive Date: 20081008
  Receipt Date: 20080923
  Transmission Date: 20090506
  Serious: Yes (Death)
  Sender: FDA-Public Use
  Company Number: ENC200800181

PATIENT
  Age: 75 Year
  Sex: Male

DRUGS (2)
  1. ARGATROBAN [Suspect]
     Indication: PULMONARY EMBOLISM
     Dosage: INTRAVENOUS
     Route: 042
     Dates: start: 20070101, end: 20070101
  2. ANTIBIOTICS [Concomitant]

REACTIONS (4)
  - COAGULATION TIME PROLONGED [None]
  - GASTROINTESTINAL HAEMORRHAGE [None]
  - HAEMOGLOBIN DECREASED [None]
  - INTERNATIONAL NORMALISED RATIO INCREASED [None]
